FAERS Safety Report 12782812 (Version 1)
Quarter: 2016Q3

REPORT INFORMATION
  Report Type: Other
  Country: CA (occurrence: CA)
  Receive Date: 20160927
  Receipt Date: 20160927
  Transmission Date: 20161109
  Serious: Yes (Other)
  Sender: FDA-Public Use
  Company Number: CA-APOTEX-2016AP011944

PATIENT
  Age: 31 Year
  Sex: Male

DRUGS (4)
  1. BUDESONIDE W/FORMOTEROL [Concomitant]
     Active Substance: BUDESONIDE\FORMOTEROL
     Indication: PRODUCT USED FOR UNKNOWN INDICATION
     Route: 065
  2. TERBUTALINE SULPHATE [Concomitant]
     Active Substance: TERBUTALINE SULFATE
     Indication: PRODUCT USED FOR UNKNOWN INDICATION
     Route: 065
  3. APO-MONTELUKAST [Suspect]
     Active Substance: MONTELUKAST SODIUM
     Indication: PRODUCT USED FOR UNKNOWN INDICATION
     Route: 065
  4. XOLAIR [Suspect]
     Active Substance: OMALIZUMAB
     Indication: ASTHMA
     Dosage: 375 MG, ONCE EVERY 2 WEEKS
     Route: 058

REACTIONS (8)
  - Influenza like illness [Recovered/Resolved]
  - Wheezing [Recovered/Resolved]
  - Insomnia [Recovered/Resolved]
  - Forced expiratory volume decreased [Recovered/Resolved]
  - Sputum discoloured [Recovered/Resolved]
  - Upper respiratory tract infection [Recovered/Resolved]
  - Pyrexia [Recovered/Resolved]
  - Paraesthesia [Recovered/Resolved]
